FAERS Safety Report 22154842 (Version 2)
Quarter: 2023Q2

REPORT INFORMATION
  Report Type: Spontaneous
  Country: US (occurrence: US)
  Receive Date: 20230330
  Receipt Date: 20230626
  Transmission Date: 20230722
  Serious: Yes (Other)
  Sender: FDA-Public Use
  Company Number: US-BRISTOL-MYERS SQUIBB COMPANY-2023-044127

PATIENT
  Sex: Male

DRUGS (1)
  1. OPDUALAG [Suspect]
     Active Substance: NIVOLUMAB\RELATLIMAB-RMBW
     Indication: Plasma cell myeloma
     Dosage: DOSE: 481 MG/60 MG, ONCE PER MONTH.
     Dates: start: 20220419, end: 20220830

REACTIONS (1)
  - Myasthenia gravis [Unknown]
